FAERS Safety Report 24561628 (Version 1)
Quarter: 2024Q4

REPORT INFORMATION
  Report Type: Spontaneous
  Country: JP (occurrence: JP)
  Receive Date: 20241029
  Receipt Date: 20241029
  Transmission Date: 20250114
  Serious: Yes (Other)
  Sender: ALEXION PHARMACEUTICALS
  Company Number: JP-ASTRAZENECA-240065533_013020_P_1

PATIENT
  Age: 77 Year

DRUGS (3)
  1. TAGRISSO [Suspect]
     Active Substance: OSIMERTINIB
     Indication: Non-small cell lung cancer
     Dosage: 80 MILLIGRAM, QD
  2. TAGRISSO [Suspect]
     Active Substance: OSIMERTINIB
     Dosage: 40 MILLIGRAM, QD
  3. IRESSA [Suspect]
     Active Substance: GEFITINIB
     Dosage: 250 MILLIGRAM, QD

REACTIONS (5)
  - Organising pneumonia [Unknown]
  - Interstitial lung disease [Unknown]
  - Pleural effusion [Unknown]
  - Metastases to bone [Unknown]
  - Metastases to lung [Unknown]
